FAERS Safety Report 9639630 (Version 1)
Quarter: 2013Q4

REPORT INFORMATION
  Report Type: Spontaneous
  Country: US (occurrence: US)
  Receive Date: 20131023
  Receipt Date: 20131023
  Transmission Date: 20140711
  Serious: No
  Sender: FDA-Public Use
  Company Number: US-BIOGENIDEC-2013BI099713

PATIENT
  Age: 40 Year
  Sex: Female

DRUGS (1)
  1. AVONEX [Suspect]
     Indication: MULTIPLE SCLEROSIS
     Route: 030
     Dates: start: 20071102, end: 20130531

REACTIONS (7)
  - Feeling jittery [Recovered/Resolved]
  - Pharyngeal oedema [Recovered/Resolved]
  - Aphagia [Recovered/Resolved]
  - Fluid intake reduced [Recovered/Resolved]
  - Candida infection [Recovered/Resolved]
  - Stress [Recovered/Resolved]
  - Malaise [Recovered/Resolved]
